FAERS Safety Report 6317181-5 (Version None)
Quarter: 2009Q3

REPORT INFORMATION
  Report Type: 
  Country: None (occurrence: None)
  Receive Date: 20090819
  Receipt Date: 20090806
  Transmission Date: 20100115
  Serious: Yes (Other)
  Sender: FDA-Public Use
  Company Number: 232815K08USA

PATIENT
  Age: 72 Year
  Sex: Male

DRUGS (9)
  1. REBIF [Suspect]
     Indication: MULTIPLE SCLEROSIS
     Dosage: 44 MCG, 3 IN 1 WEEKS, SUBCUTANEOUS
     Route: 058
     Dates: start: 20061219
  2. ALEVE [Suspect]
     Dates: end: 20090101
  3. VYTORIN [Concomitant]
  4. AVALIDE [Concomitant]
  5. GABAPENTIN [Concomitant]
  6. LEXAPRO [Concomitant]
  7. ASPIRIN [Concomitant]
  8. LECITHIN (LECITHIN) [Concomitant]
  9. MULTIVITAMIN [Concomitant]

REACTIONS (1)
  - RENAL FAILURE CHRONIC [None]
